FAERS Safety Report 5337055-6 (Version None)
Quarter: 2007Q2

REPORT INFORMATION
  Report Type: 
  Country: None (occurrence: None)
  Receive Date: 20070529
  Receipt Date: 20070516
  Transmission Date: 20071010
  Serious: Yes (Other)
  Sender: FDA-Public Use
  Company Number: DE-ELI_LILLY_AND_COMPANY-DE200705004678

PATIENT
  Age: 55 Year
  Sex: Female

DRUGS (3)
  1. FLUOXETINE HCL [Suspect]
     Indication: DEPRESSION
     Dosage: 20 MG, DAILY (1/D)
     Route: 048
  2. CORTICOSTEROID NOS [Concomitant]
  3. TAVOR [Concomitant]

REACTIONS (5)
  - ACTINIC KERATOSIS [None]
  - BLOOD IMMUNOGLOBULIN A DECREASED [None]
  - BLOOD IMMUNOGLOBULIN G DECREASED [None]
  - BLOOD IMMUNOGLOBULIN M DECREASED [None]
  - SQUAMOUS CELL CARCINOMA [None]
